FAERS Safety Report 7551746-8 (Version None)
Quarter: 2011Q2

REPORT INFORMATION
  Report Type: 
  Country: None (occurrence: None)
  Receive Date: 20110616
  Receipt Date: 20101202
  Transmission Date: 20111010
  Serious: Yes (Hospitalization)
  Sender: FDA-Public Use
  Company Number: A0899141A

PATIENT
  Age: 56 Year
  Sex: Male

DRUGS (1)
  1. AVANDIA [Suspect]
     Indication: DIABETES MELLITUS
     Route: 048

REACTIONS (6)
  - CHEST PAIN [None]
  - EYE EXCISION [None]
  - ARRHYTHMIA [None]
  - HYPERTENSION [None]
  - HEADACHE [None]
  - MEMORY IMPAIRMENT [None]
